FAERS Safety Report 10548384 (Version 1)
Quarter: 2014Q4

REPORT INFORMATION
  Report Type: Spontaneous
  Country: US (occurrence: None)
  Receive Date: 20141027
  Receipt Date: 20141027
  Transmission Date: 20150529
  Serious: Yes (Other)
  Sender: FDA-Public Use
  Company Number: None

PATIENT
  Age: 47 Year
  Sex: Male
  Weight: 64 kg

DRUGS (2)
  1. RADIATION THERAPY [Concomitant]
     Active Substance: RADIATION THERAPY
  2. IPILIMUMAB [Suspect]
     Active Substance: IPILIMUMAB
     Dosage: 10MG/KG, IV Q3 WEEKS X 4  ?09/12/14,  10/03/14,  10/2
     Route: 042
     Dates: start: 20140912

REACTIONS (1)
  - Chest pain [None]

NARRATIVE: CASE EVENT DATE: 20141016
